FAERS Safety Report 6465151-9 (Version None)
Quarter: 2009Q4

REPORT INFORMATION
  Report Type: 
  Country: None (occurrence: None)
  Receive Date: 20091124
  Receipt Date: 20091120
  Transmission Date: 20100525
  Serious: Yes (Other)
  Sender: FDA-Public Use
  Company Number: GRT 2009-14050

PATIENT
  Age: 54 Year
  Sex: Female

DRUGS (4)
  1. LIDOCAINE HCL [Suspect]
     Dosage: 1 PATCH
     Dates: start: 20090924, end: 20091001
  2. EPROSARTAN [Concomitant]
  3. VALPROATE SODIUM [Concomitant]
  4. BENDROFLUMETHIAZIDE [Concomitant]

REACTIONS (2)
  - NEPHRITIS [None]
  - RENAL FAILURE [None]
